FAERS Safety Report 6923416-8 (Version None)
Quarter: 2010Q3

REPORT INFORMATION
  Report Type: 
  Country: None (occurrence: None)
  Receive Date: 20100813
  Receipt Date: 20100802
  Transmission Date: 20110219
  Serious: Yes (Hospitalization)
  Sender: FDA-Public Use
  Company Number: JP-PFIZER INC-2010097138

PATIENT
  Age: 83 Year
  Sex: Female

DRUGS (12)
  1. LYRICA [Suspect]
     Indication: POST HERPETIC NEURALGIA
     Dosage: 75 MG, 1X/DAY
     Route: 048
     Dates: start: 20100706, end: 20100720
  2. PLETAL [Concomitant]
     Dosage: UNK
     Route: 048
  3. ZYLORIC ^FAES^ [Concomitant]
     Dosage: UNK
     Route: 048
  4. LASIX [Concomitant]
     Dosage: UNK
     Route: 048
  5. ALDACTONE [Concomitant]
     Dosage: UNK
     Route: 048
  6. OMEPRAL [Concomitant]
     Dosage: UNK
     Route: 048
  7. LOXONIN [Concomitant]
     Dosage: UNK
     Route: 048
  8. NEUROTROPIN [Concomitant]
     Dosage: UNK
     Route: 048
  9. MAGNESIUM OXIDE [Concomitant]
     Dosage: UNK
     Route: 048
  10. ZYRTEC [Concomitant]
     Dosage: UNK
     Route: 048
  11. ASPIRIN [Concomitant]
     Dosage: UNK
  12. DEPAS [Concomitant]
     Dosage: UNK
     Dates: start: 20100714

REACTIONS (3)
  - CARDIAC FAILURE [None]
  - RASH [None]
  - WHEEZING [None]
